FAERS Safety Report 24983035 (Version 1)
Quarter: 2025Q1

REPORT INFORMATION
  Report Type: Report from Study
  Country: BR (occurrence: BR)
  Receive Date: 20250218
  Receipt Date: 20250218
  Transmission Date: 20250409
  Serious: Yes (Other)
  Sender: PFIZER
  Company Number: BR-PFIZER INC-PV202300201543

PATIENT
  Age: 49 Year
  Sex: Female
  Weight: 102 kg

DRUGS (17)
  1. INFLIXIMAB [Suspect]
     Active Substance: INFLIXIMAB
     Indication: Colitis ulcerative
     Route: 042
     Dates: start: 20220923
  2. INFLIXIMAB [Suspect]
     Active Substance: INFLIXIMAB
     Route: 042
     Dates: start: 20241002
  3. INFLIXIMAB [Suspect]
     Active Substance: INFLIXIMAB
     Route: 065
  4. COVID-19 VACCINE [Concomitant]
  5. LOSARTAN [Concomitant]
     Active Substance: LOSARTAN
     Indication: Hypertension
     Dosage: 2 PILLS A DAY
     Route: 048
  6. INSULIN NOS [Concomitant]
     Active Substance: INSULIN NOS
     Indication: Diabetes mellitus
     Route: 058
  7. NPH INSULIN [Concomitant]
     Active Substance: INSULIN BEEF
     Indication: Diabetes mellitus
     Dosage: 70 UI 3 TIMES A
     Route: 058
  8. AMITRIPTYLINE [Concomitant]
     Active Substance: AMITRIPTYLINE
     Indication: Ankylosing spondylitis
     Dosage: 2 PILLS A DAY
     Route: 048
  9. AMITRIPTYLINE [Concomitant]
     Active Substance: AMITRIPTYLINE
     Indication: Colitis ulcerative
  10. SULFASALAZINE [Concomitant]
     Active Substance: SULFASALAZINE
     Indication: Colitis ulcerative
     Dosage: 6 PILLS A DAY
     Route: 048
  11. SULFASALAZINE [Concomitant]
     Active Substance: SULFASALAZINE
     Indication: Ankylosing spondylitis
  12. FOLIC ACID [Concomitant]
     Active Substance: FOLIC ACID
     Indication: Ankylosing spondylitis
     Dosage: 1 PILL A DAY
     Route: 048
  13. FOLIC ACID [Concomitant]
     Active Substance: FOLIC ACID
     Indication: Colitis ulcerative
  14. GLUCOPHAGE XR [Concomitant]
     Active Substance: METFORMIN HYDROCHLORIDE
     Indication: Diabetes mellitus
     Dosage: 4 PILLS A DAY
     Route: 048
  15. DAPAGLIFLOZIN [Concomitant]
     Active Substance: DAPAGLIFLOZIN
     Dosage: 1 PILL A DAY
  16. GLIFAGE [Concomitant]
     Active Substance: METFORMIN HYDROCHLORIDE
     Dosage: 4 PILLS A DAY
  17. AMLODIPINE [Concomitant]
     Active Substance: AMLODIPINE BESYLATE

REACTIONS (7)
  - Carpal tunnel syndrome [Recovered/Resolved]
  - COVID-19 [Recovered/Resolved]
  - Intentional dose omission [Unknown]
  - Antibiotic therapy [Unknown]
  - Rash vesicular [Unknown]
  - Muscle spasms [Unknown]
  - Influenza [Unknown]

NARRATIVE: CASE EVENT DATE: 20231127
